FAERS Safety Report 6746655-8 (Version None)
Quarter: 2010Q2

REPORT INFORMATION
  Report Type: 
  Country: None (occurrence: None)
  Receive Date: 20100528
  Receipt Date: 20100202
  Transmission Date: 20101027
  Serious: No
  Sender: FDA-Public Use
  Company Number: US-ASTRAZENECA-2010SE05227

PATIENT
  Sex: Female

DRUGS (5)
  1. PRILOSEC OTC [Suspect]
     Route: 002
     Dates: start: 20090901
  2. CALCIUM CARBONATE [Suspect]
  3. VITAMIN D [Suspect]
  4. ASPIRIN [Concomitant]
     Dosage: UNKNOWN
  5. VITAMIN K /01542801/ [Concomitant]
     Dosage: UNKNOWN

REACTIONS (2)
  - DRY MOUTH [None]
  - INCORRECT DRUG ADMINISTRATION DURATION [None]
